FAERS Safety Report 9255855 (Version 2)
Quarter: 2014Q1

REPORT INFORMATION
  Report Type: Report from Study
  Country: US (occurrence: US)
  Receive Date: 20130425
  Receipt Date: 20140311
  Transmission Date: 20141002
  Serious: Yes (Hospitalization, Other)
  Sender: FDA-Public Use
  Company Number: US-ALEXION-A201300902

PATIENT
  Age: 30 Year
  Sex: Female

DRUGS (1)
  1. SOLIRIS [Suspect]
     Indication: PAROXYSMAL NOCTURNAL HAEMOGLOBINURIA
     Dosage: 900 MG, Q2W
     Route: 042

REACTIONS (5)
  - Aplastic anaemia [Recovered/Resolved]
  - Red blood cell count decreased [Unknown]
  - Platelet transfusion [Unknown]
  - White blood cell count decreased [Unknown]
  - Malaise [Unknown]
